FAERS Safety Report 8682763 (Version 2)
Quarter: 2012Q4

REPORT INFORMATION
  Report Type: 
  Country: FR (occurrence: FR)
  Receive Date: 20120725
  Receipt Date: 20120912
  Transmission Date: 20130627
  Serious: Yes (Life-Threatening, Hospitalization, Other)
  Sender: FDA-Public Use
  Company Number: PHHY2012FR063475

PATIENT
  Age: 65 Year
  Sex: Male

DRUGS (13)
  1. CERTICAN [Suspect]
     Indication: RENAL TRANSPLANT
     Dosage: 1 DF, BID
     Route: 048
     Dates: start: 201201, end: 20120629
  2. CORDARONE [Suspect]
     Dosage: 1 DF, QD, for 5 days weekly
     Route: 048
     Dates: start: 20120518, end: 20120630
  3. MYFORTIC [Concomitant]
     Dosage: 1 DF, BID
     Route: 048
     Dates: start: 201110, end: 20120630
  4. PROGRAF [Concomitant]
     Dosage: 4 mg, BID
  5. CELLCEPT [Concomitant]
     Dosage: 500 mg, BID
  6. LASILIX [Concomitant]
     Dosage: 40 mg,
     Route: 048
     Dates: start: 201110, end: 201206
  7. CRESTOR [Concomitant]
     Dosage: 5 mg, UNK
     Route: 048
     Dates: start: 201110, end: 201206
  8. KARDEGIC [Concomitant]
     Dosage: 75 mg, UNK
     Route: 048
     Dates: start: 201110, end: 201206
  9. COUMADINE [Concomitant]
     Dosage: 2 mg, UNK
     Route: 048
     Dates: start: 201110, end: 20120629
  10. DETENSIEL [Concomitant]
     Dosage: 10 mg, UNK
     Route: 048
     Dates: end: 201206
  11. CORTANCYL [Concomitant]
     Dosage: 10 mg, UNK
     Route: 048
     Dates: start: 2011, end: 201206
  12. TRIATEC [Concomitant]
     Dosage: 5 mg, QD
     Route: 048
     Dates: start: 20120315, end: 20120601
  13. MAG 2 [Concomitant]
     Dosage: 1 DF, TID
     Route: 048
     Dates: end: 20120629

REACTIONS (16)
  - Interstitial lung disease [Recovered/Resolved]
  - Respiratory disorder [Unknown]
  - Condition aggravated [Unknown]
  - Lung disorder [Unknown]
  - Acute respiratory distress syndrome [Unknown]
  - Pyrexia [Unknown]
  - Cough [Unknown]
  - Acute pulmonary oedema [Unknown]
  - Fluid overload [Unknown]
  - Blood pressure systolic increased [Unknown]
  - Renal failure acute [Recovering/Resolving]
  - Renal impairment [Recovering/Resolving]
  - Kidney transplant rejection [Unknown]
  - Pneumocystis jiroveci infection [Unknown]
  - Crepitations [Unknown]
  - Livedo reticularis [Unknown]
